FAERS Safety Report 5349440-7 (Version None)
Quarter: 2007Q2

REPORT INFORMATION
  Report Type: 
  Country: None (occurrence: None)
  Receive Date: 20070607
  Receipt Date: 20070523
  Transmission Date: 20071010
  Serious: Yes (Congenital Anomaly, Other)
  Sender: FDA-Public Use
  Company Number: FR-ROCHE-499377

PATIENT
  Age: 37 Year
  Sex: Female

DRUGS (3)
  1. APRANAX [Suspect]
     Indication: PAIN
     Dosage: DRUG NAME: APRANAX 550.
     Route: 065
  2. PROGESTIN INJ [Interacting]
     Indication: CONTRACEPTION
     Dosage: DRUG NAME: PURE PROGESTIN ORAL CONTRACEPTION.
     Route: 048
  3. 1 CONCOMITANT DRUG [Concomitant]
     Dosage: DRUG NAME: NSAID.

REACTIONS (2)
  - DRUG INTERACTION [None]
  - INTRA-UTERINE DEATH [None]
